FAERS Safety Report 17050954 (Version 2)
Quarter: 2020Q3

REPORT INFORMATION
  Report Type: Report from Study
  Country: JP (occurrence: JP)
  Receive Date: 20191120
  Receipt Date: 20200914
  Transmission Date: 20201102
  Serious: Yes (Other)
  Sender: FDA-Public Use
  Company Number: JP-AMGEN-JPNCT2016157983

PATIENT
  Age: 66 Year
  Sex: Female
  Weight: 69 kg

DRUGS (70)
  1. ROMIPLOSTIM [Suspect]
     Active Substance: ROMIPLOSTIM
     Dosage: 10 MICROGRAM/KILOGRAM, QWK
     Route: 058
     Dates: start: 20151208, end: 20151221
  2. PREDONINE [Concomitant]
     Active Substance: PREDNISOLONE
     Dosage: 6 MILLIGRAM
     Route: 048
     Dates: start: 20160617, end: 20160705
  3. PREDONINE [Concomitant]
     Active Substance: PREDNISOLONE
     Dosage: 5 MILLIGRAM
     Route: 048
     Dates: start: 20160706, end: 20160719
  4. PREDONINE [Concomitant]
     Active Substance: PREDNISOLONE
     Dosage: 7 MILLIGRAM
     Route: 048
     Dates: start: 20170405
  5. CARBAZOCHROME SULFONATE NA [Concomitant]
     Indication: IMMUNE THROMBOCYTOPENIA
     Dosage: 90 MG, UNK
     Route: 048
     Dates: start: 20151013, end: 20151102
  6. SANGLOPOR [Concomitant]
     Active Substance: HUMAN IMMUNOGLOBULIN G
     Indication: IMMUNE THROMBOCYTOPENIA
     Dosage: 20000 MG, UNK
     Route: 041
     Dates: start: 20151016, end: 20151020
  7. POLARAMINE [Concomitant]
     Active Substance: DEXCHLORPHENIRAMINE MALEATE
     Indication: PRODUCT USED FOR UNKNOWN INDICATION
     Dosage: UNK
     Route: 048
  8. MIYA?BM [Concomitant]
     Active Substance: CLOSTRIDIUM BUTYRICUM SPORES STRAIN M-55
     Indication: CONSTIPATION
     Dosage: UNK
     Route: 048
  9. ALVESCO [Concomitant]
     Active Substance: CICLESONIDE
     Indication: PRODUCT USED FOR UNKNOWN INDICATION
  10. ROMIPLOSTIM [Suspect]
     Active Substance: ROMIPLOSTIM
     Dosage: 5 MICROGRAM/KILOGRAM
     Route: 058
     Dates: start: 20151228, end: 20151228
  11. ROMIPLOSTIM [Suspect]
     Active Substance: ROMIPLOSTIM
     Dosage: 10 MICROGRAM/KILOGRAM
     Route: 058
     Dates: start: 20160102, end: 20160102
  12. ROMIPLOSTIM [Suspect]
     Active Substance: ROMIPLOSTIM
     Dosage: 10 MICROGRAM/KILOGRAM, QWK
     Route: 058
     Dates: start: 20160104
  13. PREDONINE [Concomitant]
     Active Substance: PREDNISOLONE
     Dosage: 4.5 MILLIGRAM
     Route: 048
     Dates: start: 20160720, end: 20160816
  14. PREDONINE [Concomitant]
     Active Substance: PREDNISOLONE
     Dosage: 10 MILLIGRAM
     Route: 048
     Dates: start: 20170116, end: 20170221
  15. FEXOFENADINE HYDROCHLORIDE. [Concomitant]
     Active Substance: FEXOFENADINE HYDROCHLORIDE
     Indication: DERMATITIS ALLERGIC
     Dosage: UNK
     Route: 048
  16. UREPEARL [Concomitant]
     Active Substance: UREA
     Indication: DERMATITIS ALLERGIC
     Dosage: UNK
     Route: 061
  17. ROMIPLOSTIM [Suspect]
     Active Substance: ROMIPLOSTIM
     Dosage: 4 MICROGRAM/KILOGRAM
     Route: 058
     Dates: start: 20151118, end: 20151118
  18. DEXART [Concomitant]
     Active Substance: DEXAMETHASONE SODIUM PHOSPHATE
     Indication: IMMUNE THROMBOCYTOPENIA
     Dosage: 33 MILLIGRAM
     Route: 065
     Dates: start: 20151016, end: 20151018
  19. PREDONINE [Concomitant]
     Active Substance: PREDNISOLONE
     Dosage: 8 MILLIGRAM
     Route: 048
     Dates: start: 20170315, end: 20170404
  20. CARBAZOCHROME SULFONATE NA [Concomitant]
     Dosage: 90 MG, UNK
     Route: 048
     Dates: start: 20151119, end: 20151202
  21. TRANSAMIN [Concomitant]
     Active Substance: TRANEXAMIC ACID
     Dosage: 750 MG, UNK
     Route: 048
     Dates: start: 20160617, end: 20160622
  22. HICEE [Concomitant]
     Active Substance: ASCORBIC ACID\VITAMINS
     Indication: IMMUNE THROMBOCYTOPENIA
     Dosage: 3000 MG, UNK
     Route: 048
     Dates: start: 20151119, end: 20160705
  23. ATORVASTATIN [Concomitant]
     Active Substance: ATORVASTATIN
     Indication: HYPERLIPIDAEMIA
     Dosage: UNK
     Route: 048
  24. PANTETHINE [Concomitant]
     Active Substance: PANTETHINE
     Indication: CONSTIPATION
     Dosage: UNK
     Route: 048
  25. DEXART [Concomitant]
     Active Substance: DEXAMETHASONE SODIUM PHOSPHATE
     Dosage: 33 MILLIGRAM
     Route: 065
     Dates: start: 20151127, end: 20151130
  26. PREDONINE [Concomitant]
     Active Substance: PREDNISOLONE
     Indication: IMMUNE THROMBOCYTOPENIA
     Dosage: 5 MILLIGRAM
     Route: 048
     Dates: start: 20151225, end: 20160120
  27. PREDONINE [Concomitant]
     Active Substance: PREDNISOLONE
     Dosage: 3.5 MILLIGRAM
     Route: 048
     Dates: start: 20160303, end: 20160412
  28. TRANSAMIN [Concomitant]
     Active Substance: TRANEXAMIC ACID
     Indication: IMMUNE THROMBOCYTOPENIA
     Dosage: 750 MG, UNK
     Route: 048
     Dates: start: 20151119, end: 20151202
  29. RINDERON VG [Concomitant]
     Active Substance: BETAMETHASONE VALERATE\GENTAMICIN SULFATE
     Indication: DERMATITIS ALLERGIC
     Dosage: UNK
     Route: 061
  30. MAGNESIUM OXIDE. [Concomitant]
     Active Substance: MAGNESIUM OXIDE
     Indication: CONSTIPATION
     Dosage: UNK
     Route: 048
  31. VALSARTAN. [Concomitant]
     Active Substance: VALSARTAN
     Indication: HYPERTENSION
     Dosage: UNK
     Route: 048
  32. BORRAZA G [Concomitant]
     Active Substance: LIDOCAINE\TRIBENOSIDE
     Indication: HAEMORRHOIDS
     Dosage: UNK
     Route: 054
  33. POSTERISAN [Concomitant]
     Active Substance: LIDOCAINE
     Indication: HAEMORRHOIDS
     Dosage: UNK
     Route: 061
  34. POVIDONE?IODINE. [Concomitant]
     Active Substance: POVIDONE-IODINE
     Indication: PROPHYLAXIS
     Dosage: UNK
     Route: 049
  35. ALENDRONATE [Concomitant]
     Active Substance: ALENDRONATE SODIUM
     Indication: PROPHYLAXIS
     Dosage: UNK
     Route: 048
  36. TEPRENONE [Concomitant]
     Active Substance: TEPRENONE
     Indication: PRODUCT USED FOR UNKNOWN INDICATION
     Route: 048
  37. ROMIPLOSTIM [Suspect]
     Active Substance: ROMIPLOSTIM
     Dosage: 2 MICROGRAM/KILOGRAM
     Route: 058
     Dates: start: 20151019, end: 20151019
  38. ROMIPLOSTIM [Suspect]
     Active Substance: ROMIPLOSTIM
     Dosage: 3 MICROGRAM/KILOGRAM
     Route: 058
     Dates: start: 20151026, end: 20151026
  39. ROMIPLOSTIM [Suspect]
     Active Substance: ROMIPLOSTIM
     Dosage: 8 MICROGRAM/KILOGRAM, QWK
     Route: 058
     Dates: start: 20151124, end: 20151203
  40. DEXART [Concomitant]
     Active Substance: DEXAMETHASONE SODIUM PHOSPHATE
     Dosage: 33 MILLIGRAM
     Route: 065
     Dates: start: 20160617, end: 20160619
  41. PREDONINE [Concomitant]
     Active Substance: PREDNISOLONE
     Dosage: 4 MILLIGRAM
     Route: 048
     Dates: start: 20160817, end: 20161218
  42. REVOLADE [Concomitant]
     Active Substance: ELTROMBOPAG
     Indication: IMMUNE THROMBOCYTOPENIA
     Dosage: 50 MILLIGRAM
     Route: 048
     Dates: start: 20151005, end: 20151013
  43. TRANEXAMIC ACID. [Concomitant]
     Active Substance: TRANEXAMIC ACID
     Indication: IMMUNE THROMBOCYTOPENIA
     Dosage: 750 MG, UNK
     Route: 048
     Dates: start: 20151013, end: 20151102
  44. CARBAZOCHROME SULFONATE NA [Concomitant]
     Dosage: 90 MG, UNK
     Route: 048
     Dates: start: 20160617, end: 20160622
  45. SHOSAIKOTO [Concomitant]
     Active Substance: HERBALS
     Indication: PRODUCT USED FOR UNKNOWN INDICATION
     Dosage: UNK
     Route: 048
  46. RESPLEN [Concomitant]
     Active Substance: EPRAZINONE
     Indication: PRODUCT USED FOR UNKNOWN INDICATION
     Route: 048
  47. CALONAL [Concomitant]
     Active Substance: ACETAMINOPHEN
     Indication: PRODUCT USED FOR UNKNOWN INDICATION
     Route: 048
  48. PREDONINE [Concomitant]
     Active Substance: PREDNISOLONE
     Dosage: 4.5 MILLIGRAM
     Route: 048
     Dates: start: 20160121, end: 20160217
  49. PREDONINE [Concomitant]
     Active Substance: PREDNISOLONE
     Dosage: 3 MILLIGRAM
     Route: 048
     Dates: start: 20160413, end: 20160616
  50. PREDONINE [Concomitant]
     Active Substance: PREDNISOLONE
     Dosage: 6 MG, UNK
     Route: 048
     Dates: start: 20161219, end: 20170115
  51. OMEPRAZOLE. [Concomitant]
     Active Substance: OMEPRAZOLE
     Indication: PROPHYLAXIS
     Dosage: 20 MG, UNK
     Route: 048
     Dates: start: 20151016, end: 20151021
  52. RISPERIDONE. [Concomitant]
     Active Substance: RISPERIDONE
     Indication: PRODUCT USED FOR UNKNOWN INDICATION
     Dosage: UNK
     Route: 048
  53. FAMOTIDINE. [Concomitant]
     Active Substance: FAMOTIDINE
     Indication: PROPHYLAXIS
     Dosage: UNK
     Route: 048
  54. AMITIZA [Concomitant]
     Active Substance: LUBIPROSTONE
     Indication: CONSTIPATION
     Dosage: UNK
     Route: 048
  55. XYZAL [Concomitant]
     Active Substance: LEVOCETIRIZINE DIHYDROCHLORIDE
     Indication: SEASONAL ALLERGY
     Dosage: UNK
     Route: 048
  56. SHOSEIRYUTO [Concomitant]
     Active Substance: EPHEDRA SINICA STEM\HERBALS
     Indication: PRODUCT USED FOR UNKNOWN INDICATION
     Dosage: UNK
     Route: 048
  57. ROMIPLOSTIM [Suspect]
     Active Substance: ROMIPLOSTIM
     Indication: IMMUNE THROMBOCYTOPENIA
     Dosage: 1 MICROGRAM/KILOGRAM
     Route: 058
     Dates: start: 20151013, end: 20151013
  58. ROMIPLOSTIM [Suspect]
     Active Substance: ROMIPLOSTIM
     Dosage: 4 MICROGRAM/KILOGRAM
     Route: 058
     Dates: start: 20151030, end: 20151030
  59. ROMIPLOSTIM [Suspect]
     Active Substance: ROMIPLOSTIM
     Dosage: 4 MICROGRAM/KILOGRAM, QWK
     Route: 058
     Dates: start: 20151102, end: 20151116
  60. FERROMIA [Concomitant]
     Active Substance: SODIUM FERROUS CITRATE
     Indication: IRON DEFICIENCY ANAEMIA
     Dosage: 100 MG, UNK
     Route: 048
     Dates: start: 20151013, end: 20151025
  61. NAUZELIN [Concomitant]
     Active Substance: DOMPERIDONE
     Indication: PROPHYLAXIS
     Dosage: 20 MG, UNK
     Route: 048
     Dates: start: 20151013, end: 20151025
  62. SULFAMETHOXAZOLE AND TRIMETHOPRIM [Concomitant]
     Active Substance: SULFAMETHOXAZOLE\TRIMETHOPRIM
     Indication: PROPHYLAXIS
     Dosage: UNK
     Route: 048
  63. BROTIZOLAM [Concomitant]
     Active Substance: BROTIZOLAM
     Indication: INSOMNIA
     Route: 048
  64. MAOUBUSISAISIN KOTARO [Concomitant]
     Indication: PRODUCT USED FOR UNKNOWN INDICATION
     Route: 048
  65. PREDONINE [Concomitant]
     Active Substance: PREDNISOLONE
     Dosage: 4 MILLIGRAM
     Route: 048
     Dates: start: 20160218, end: 20160302
  66. PREDONINE [Concomitant]
     Active Substance: PREDNISOLONE
     Dosage: 9 MILLIGRAM
     Route: 048
     Dates: start: 20170222, end: 20170314
  67. HICEE [Concomitant]
     Active Substance: ASCORBIC ACID\VITAMINS
     Dosage: 3000 MG, UNK
     Route: 048
     Dates: start: 20160810, end: 20161214
  68. AMLODIPINE [Concomitant]
     Active Substance: AMLODIPINE BESYLATE
     Indication: HYPERTENSION
     Dosage: UNK
     Route: 048
  69. NEXIUM [Concomitant]
     Active Substance: ESOMEPRAZOLE MAGNESIUM
     Indication: PROPHYLAXIS
     Dosage: UNK
     Route: 048
  70. HUSCODE [Concomitant]
     Active Substance: CHLORPHENIRAMINE MALEATE\DIHYDROCODEINE PHOSPHATE\METHYLEPHEDRINE HYDROCHLORIDE, DL-
     Indication: PRODUCT USED FOR UNKNOWN INDICATION
     Route: 048

REACTIONS (10)
  - Nasopharyngitis [Recovered/Resolved]
  - Malaise [Recovered/Resolved]
  - Pharyngitis [Recovered/Resolved]
  - Bronchitis [Recovered/Resolved]
  - Insomnia [Recovered/Resolved]
  - Hallucination [Recovered/Resolved]
  - Influenza [Recovered/Resolved]
  - Arthralgia [Recovered/Resolved]
  - Urticaria [Recovering/Resolving]
  - Pain in extremity [Recovering/Resolving]

NARRATIVE: CASE EVENT DATE: 20151017
